FAERS Safety Report 14873776 (Version 1)
Quarter: 2018Q2

REPORT INFORMATION
  Report Type: Spontaneous
  Country: US (occurrence: US)
  Receive Date: 20180510
  Receipt Date: 20180510
  Transmission Date: 20180711
  Serious: Yes (Hospitalization)
  Sender: FDA-Public Use
  Company Number: US-BAYER-2018-088838

PATIENT
  Age: 64 Year
  Sex: Female

DRUGS (2)
  1. ACETYLSALICYLIC ACID({=100 MG) [Suspect]
     Active Substance: ASPIRIN
  2. WARFARIN [Interacting]
     Active Substance: WARFARIN

REACTIONS (3)
  - Drug administration error [None]
  - Pulmonary alveolar haemorrhage [Recovering/Resolving]
  - Labelled drug-drug interaction medication error [None]
